FAERS Safety Report 11875459 (Version 2)
Quarter: 2016Q1

REPORT INFORMATION
  Report Type: Spontaneous
  Country: FR (occurrence: FR)
  Receive Date: 20151229
  Receipt Date: 20160111
  Transmission Date: 20160526
  Serious: Yes (Other)
  Sender: FDA-Public Use
  Company Number: PHHY2015FR166986

PATIENT
  Age: 13 Year
  Sex: Male
  Weight: 34 kg

DRUGS (1)
  1. ILARIS [Suspect]
     Active Substance: CANAKINUMAB
     Indication: PYOGENIC STERILE ARTHRITIS PYODERMA GANGRENOSUM AND ACNE SYNDROME
     Dosage: 3 MG/KG, (EVERY 8 WEEKS)
     Route: 058
     Dates: start: 2011

REACTIONS (6)
  - Upper respiratory tract infection [Not Recovered/Not Resolved]
  - C-reactive protein decreased [Unknown]
  - Rash [Recovered/Resolved]
  - Haemoglobin increased [Unknown]
  - Pyoderma [Recovered/Resolved]
  - Product use issue [Unknown]

NARRATIVE: CASE EVENT DATE: 2011
